FAERS Safety Report 7632656-4 (Version None)
Quarter: 2011Q3

REPORT INFORMATION
  Report Type: 
  Country: None (occurrence: None)
  Receive Date: 20110725
  Receipt Date: 20101115
  Transmission Date: 20111222
  Serious: No
  Sender: FDA-Public Use
  Company Number: US-BRISTOL-MYERS SQUIBB COMPANY-15386493

PATIENT
  Sex: Female
  Weight: 45 kg

DRUGS (10)
  1. MULTI-VITAMIN [Concomitant]
  2. DIURIL [Concomitant]
  3. ATENOLOL [Concomitant]
  4. DIGOXIN [Concomitant]
  5. CILOSTAZOL [Concomitant]
  6. OSCAL [Concomitant]
  7. POTASSIUM [Concomitant]
  8. IMDUR [Concomitant]
  9. COUMADIN [Suspect]
     Dosage: STARTED 2 MONTHS AGO AND LAST THURSDAY
     Dates: start: 20100101
  10. ALLOPURINOL [Concomitant]

REACTIONS (1)
  - DIARRHOEA [None]
